FAERS Safety Report 18914662 (Version 2)
Quarter: 2021Q1

REPORT INFORMATION
  Report Type: Report from Study
  Country: CA (occurrence: CA)
  Receive Date: 20210218
  Receipt Date: 20210312
  Transmission Date: 20210420
  Serious: Yes (Hospitalization)
  Sender: FDA-Public Use
  Company Number: CA-BAUSCH-BL-2021-005359

PATIENT
  Age: 62 Year
  Sex: Female

DRUGS (2)
  1. SILIQ [Suspect]
     Active Substance: BRODALUMAB
     Indication: PSORIASIS
     Dosage: 210MG/1.5ML; WEEK 0,1 AND 2
     Route: 058
     Dates: start: 20200731, end: 202008
  2. SILIQ [Suspect]
     Active Substance: BRODALUMAB
     Dosage: 210MG/ 1.5ML
     Route: 058
     Dates: start: 202008, end: 202101

REACTIONS (4)
  - Therapy interrupted [Unknown]
  - Hospitalisation [Recovered/Resolved]
  - Product temperature excursion issue [Unknown]
  - Product quality issue [Unknown]

NARRATIVE: CASE EVENT DATE: 202101
